FAERS Safety Report 15664678 (Version 1)
Quarter: 2018Q4

REPORT INFORMATION
  Report Type: Spontaneous
  Country: GB (occurrence: GB)
  Receive Date: 20181128
  Receipt Date: 20181128
  Transmission Date: 20190205
  Serious: Yes (Other)
  Sender: FDA-Public Use
  Company Number: GB-ACCORD-093790

PATIENT
  Age: 37 Year
  Sex: Female
  Weight: 57.15 kg

DRUGS (2)
  1. AMITRIPTYLINE [Suspect]
     Active Substance: AMITRIPTYLINE
     Indication: MIGRAINE WITH AURA
     Route: 048
  2. TANACETUM PARTHENIUM [Concomitant]
     Active Substance: TANACETUM PARTHENIUM

REACTIONS (1)
  - Depression suicidal [Recovered/Resolved]
